FAERS Safety Report 14686759 (Version 4)
Quarter: 2018Q2

REPORT INFORMATION
  Report Type: Spontaneous
  Country: US (occurrence: US)
  Receive Date: 20180327
  Receipt Date: 20180607
  Transmission Date: 20180711
  Serious: Yes (Hospitalization)
  Sender: FDA-Public Use
  Company Number: US-ACTELION-A-NJ2018-169574

PATIENT
  Age: 67 Year
  Sex: Female
  Weight: 76 kg

DRUGS (13)
  1. METOLAZONE. [Concomitant]
     Active Substance: METOLAZONE
  2. DIGOXIN. [Concomitant]
     Active Substance: DIGOXIN
  3. REQUIP [Concomitant]
     Active Substance: ROPINIROLE HYDROCHLORIDE
  4. NEXIUM [Concomitant]
     Active Substance: ESOMEPRAZOLE MAGNESIUM
  5. OXYGEN. [Suspect]
     Active Substance: OXYGEN
     Indication: PRODUCT USED FOR UNKNOWN INDICATION
     Dosage: UNK
     Route: 065
  6. ALBUTEROL. [Concomitant]
     Active Substance: ALBUTEROL
  7. SILDENAFIL. [Concomitant]
     Active Substance: SILDENAFIL
  8. REMODULIN [Concomitant]
     Active Substance: TREPROSTINIL
     Dosage: 84.1 NG/KG, PER MIN
     Route: 042
  9. KLOR-CON [Concomitant]
     Active Substance: POTASSIUM CHLORIDE
  10. TRACLEER [Suspect]
     Active Substance: BOSENTAN
     Indication: PULMONARY ARTERIAL HYPERTENSION
     Dosage: 125 MG, BID
     Route: 048
     Dates: start: 20090118
  11. ZANTAC [Concomitant]
     Active Substance: RANITIDINE HYDROCHLORIDE
  12. ZOLOFT [Concomitant]
     Active Substance: SERTRALINE HYDROCHLORIDE
  13. LASIX [Concomitant]
     Active Substance: FUROSEMIDE

REACTIONS (6)
  - Angioplasty [Unknown]
  - Cardiac failure congestive [Unknown]
  - Pneumonia [Recovered/Resolved]
  - Diarrhoea [Unknown]
  - Dry eye [Unknown]
  - Headache [Unknown]

NARRATIVE: CASE EVENT DATE: 20180316
